FAERS Safety Report 5447301-6 (Version None)
Quarter: 2007Q3

REPORT INFORMATION
  Report Type: 
  Country: None (occurrence: None)
  Receive Date: 20070905
  Receipt Date: 20070905
  Transmission Date: 20080115
  Serious: Yes (Hospitalization)
  Sender: FDA-Public Use
  Company Number: None

PATIENT
  Sex: Female
  Weight: 56.3 kg

DRUGS (1)
  1. TAXOL [Suspect]
     Dosage: 297 MG
     Dates: end: 20061208

REACTIONS (1)
  - MYELITIS TRANSVERSE [None]
